FAERS Safety Report 9366556 (Version 1)
Quarter: 2013Q2

REPORT INFORMATION
  Report Type: Spontaneous
  Country: US (occurrence: US)
  Receive Date: 20130625
  Receipt Date: 20130625
  Transmission Date: 20140414
  Serious: Yes (Other)
  Sender: FDA-Public Use
  Company Number: US-009507513-1306USA011200

PATIENT
  Sex: Female

DRUGS (1)
  1. CLARITIN-D-24 [Suspect]
     Indication: BONE PAIN
     Dosage: UNK
     Route: 048

REACTIONS (5)
  - Liver operation [Unknown]
  - Neoplasm malignant [Unknown]
  - Feeling abnormal [Unknown]
  - Dizziness [Unknown]
  - Off label use [Unknown]
